FAERS Safety Report 5293237-3 (Version None)
Quarter: 2007Q2

REPORT INFORMATION
  Report Type: 
  Country: None (occurrence: None)
  Receive Date: 20070411
  Receipt Date: 20070404
  Transmission Date: 20071010
  Serious: Yes (Death)
  Sender: FDA-Public Use
  Company Number: JP-AVENTIS-200710894JP

PATIENT

DRUGS (1)
  1. LASIX [Suspect]

REACTIONS (2)
  - DEATH [None]
  - DIZZINESS [None]
